FAERS Safety Report 5455793-1 (Version None)
Quarter: 2007Q3

REPORT INFORMATION
  Report Type: 
  Country: None (occurrence: None)
  Receive Date: 20070918
  Receipt Date: 20061108
  Transmission Date: 20080115
  Serious: No
  Sender: FDA-Public Use
  Company Number: US-ASTRAZENECA-2006UW22556

PATIENT
  Age: 54 Year
  Sex: Female
  Weight: 123.4 kg

DRUGS (7)
  1. SEROQUEL [Suspect]
     Indication: DEPRESSION
     Route: 048
     Dates: start: 20061103
  2. SEROQUEL [Suspect]
     Route: 048
     Dates: start: 20061103, end: 20061104
  3. SEROQUEL [Suspect]
     Route: 048
     Dates: start: 20061105, end: 20061105
  4. SEROQUEL [Suspect]
     Route: 048
     Dates: start: 20061106, end: 20061106
  5. PROZAC [Concomitant]
  6. PERCOCET [Concomitant]
  7. ANTI-HYPERTENSIVE MEDICATION [Concomitant]

REACTIONS (3)
  - ACCIDENTAL OVERDOSE [None]
  - DYSARTHRIA [None]
  - ILL-DEFINED DISORDER [None]
